FAERS Safety Report 8990647 (Version 2)
Quarter: 2013Q1

REPORT INFORMATION
  Report Type: Spontaneous
  Country: JP (occurrence: JP)
  Receive Date: 20121228
  Receipt Date: 20130201
  Transmission Date: 20140127
  Serious: Yes (Hospitalization)
  Sender: FDA-Public Use
  Company Number: JP-ABBOTT-12P-087-1027127-00

PATIENT
  Age: 19 Year
  Sex: Male
  Weight: 49 kg

DRUGS (6)
  1. HUMIRA [Suspect]
     Indication: CROHN^S DISEASE
     Route: 058
     Dates: start: 20120601, end: 20120601
  2. HUMIRA [Suspect]
  3. HUMIRA [Suspect]
     Dates: start: 20120530
  4. MESALAZINE [Concomitant]
     Indication: CROHN^S DISEASE
     Route: 048
     Dates: start: 20100705
  5. CLOSTRIDIUM BUTYRICUM [Concomitant]
     Indication: FUNCTIONAL GASTROINTESTINAL DISORDER
     Route: 048
     Dates: start: 20100705
  6. CLOSTRIDIUM BUTYRICUM [Concomitant]
     Indication: CROHN^S DISEASE

REACTIONS (6)
  - Henoch-Schonlein purpura [Recovered/Resolved]
  - Joint swelling [Unknown]
  - Gait disturbance [Unknown]
  - Duodenal ulcer [Unknown]
  - Gastritis [Unknown]
  - Duodenitis [Unknown]
